FAERS Safety Report 5578919-8 (Version None)
Quarter: 2008Q1

REPORT INFORMATION
  Report Type: 
  Country: None (occurrence: None)
  Receive Date: 20080102
  Receipt Date: 20071221
  Transmission Date: 20080703
  Serious: Yes (Death, Hospitalization)
  Sender: FDA-Public Use
  Company Number: US-BAYER-200717041NA

PATIENT
  Age: 65 Year
  Sex: Female
  Weight: 44 kg

DRUGS (11)
  1. CAMPATH [Suspect]
     Indication: PERIPHERAL T-CELL LYMPHOMA UNSPECIFIED
     Route: 041
     Dates: start: 20061229, end: 20070414
  2. ETOPOSIDE [Suspect]
     Indication: PERIPHERAL T-CELL LYMPHOMA UNSPECIFIED
     Route: 042
     Dates: start: 20061229, end: 20070418
  3. ONCOVIN [Suspect]
     Indication: PERIPHERAL T-CELL LYMPHOMA UNSPECIFIED
     Route: 042
     Dates: start: 20061229, end: 20070418
  4. HYDROXYDAUNORUBICIN [Suspect]
     Indication: PERIPHERAL T-CELL LYMPHOMA UNSPECIFIED
     Route: 042
     Dates: start: 20061229, end: 20070418
  5. CYCLOPHOSPHAMIDE [Suspect]
     Indication: PERIPHERAL T-CELL LYMPHOMA UNSPECIFIED
     Route: 042
     Dates: start: 20061229, end: 20070418
  6. PREDNISONE [Suspect]
     Indication: PERIPHERAL T-CELL LYMPHOMA UNSPECIFIED
     Route: 048
     Dates: start: 20061229
  7. NEUPOGEN [Suspect]
     Indication: PERIPHERAL T-CELL LYMPHOMA UNSPECIFIED
     Route: 058
     Dates: start: 20070101
  8. PENTAMIDINE ISETHIONATE [Concomitant]
     Indication: ANTIFUNGAL PROPHYLAXIS
     Route: 055
     Dates: start: 20070201, end: 20070101
  9. ACYCLOVIR [Concomitant]
  10. FLUCONAZOLE [Concomitant]
  11. BACTRIM [Concomitant]
     Indication: ANTIFUNGAL PROPHYLAXIS
     Dates: start: 20061229, end: 20070201

REACTIONS (26)
  - ACIDOSIS [None]
  - ANAEMIA [None]
  - CATHETER THROMBOSIS [None]
  - CEREBRAL TOXOPLASMOSIS [None]
  - CHONDROCALCINOSIS PYROPHOSPHATE [None]
  - ESCHERICHIA INFECTION [None]
  - FEBRILE NEUTROPENIA [None]
  - GINGIVAL BLEEDING [None]
  - HEADACHE [None]
  - HERPES SIMPLEX [None]
  - HISTIOCYTOSIS HAEMATOPHAGIC [None]
  - HYPOTENSION [None]
  - INTRA-ABDOMINAL HAEMORRHAGE [None]
  - MADAROSIS [None]
  - MYOCARDITIS TOXOPLASMAL [None]
  - PLATELET COUNT DECREASED [None]
  - PULMONARY ALVEOLAR HAEMORRHAGE [None]
  - PULMONARY OEDEMA [None]
  - RALES [None]
  - RASH [None]
  - RESPIRATORY FAILURE [None]
  - RHINORRHOEA [None]
  - STOMATITIS [None]
  - SYNCOPE [None]
  - TREMOR [None]
  - VOCAL CORD PARALYSIS [None]
